FAERS Safety Report 13001962 (Version 2)
Quarter: 2016Q4

REPORT INFORMATION
  Report Type: Spontaneous
  Country: AR (occurrence: AR)
  Receive Date: 20161206
  Receipt Date: 20161209
  Transmission Date: 20170207
  Serious: Yes (Other)
  Sender: FDA-Public Use
  Company Number: AR-PFIZER INC-2016562456

PATIENT
  Age: 69 Year
  Sex: Female

DRUGS (1)
  1. FARLUTALE [Suspect]
     Active Substance: MEDROXYPROGESTERONE ACETATE
     Dosage: 10 MG, UNK

REACTIONS (10)
  - Major depression [Unknown]
  - Adnexa uteri pain [Not Recovered/Not Resolved]
  - Abdominal pain [Not Recovered/Not Resolved]
  - Keratitis [Unknown]
  - Somnolence [Unknown]
  - Vaginal haemorrhage [Not Recovered/Not Resolved]
  - Contusion [Unknown]
  - Phlebitis [Unknown]
  - Pain in extremity [Unknown]
  - Facial paralysis [Unknown]

NARRATIVE: CASE EVENT DATE: 20161202
